FAERS Safety Report 23791984 (Version 1)
Quarter: 2024Q2

REPORT INFORMATION
  Report Type: Spontaneous
  Country: US (occurrence: US)
  Receive Date: 20240429
  Receipt Date: 20240429
  Transmission Date: 20240716
  Serious: No
  Sender: FDA-Public Use
  Company Number: US-SA-SAC20240425000144

PATIENT
  Age: 77 Year
  Sex: Female

DRUGS (9)
  1. DUPIXENT [Suspect]
     Active Substance: DUPILUMAB
     Indication: Steroid therapy
     Dosage: 300 MG, QOW
     Route: 058
     Dates: start: 202403
  2. MYCOPHENOLIC ACID [Concomitant]
     Active Substance: MYCOPHENOLIC ACID
     Dosage: UNK
  3. AMLODIPINE [Concomitant]
     Active Substance: AMLODIPINE BESYLATE
  4. FUROSEMIDE [Concomitant]
     Active Substance: FUROSEMIDE
  5. MAGNESIUM [Concomitant]
     Active Substance: MAGNESIUM
     Dosage: UNK MG
  6. POTASSIUM [Concomitant]
     Active Substance: POTASSIUM
     Dosage: UNK MEQ
  7. PREDNISONE [Concomitant]
     Active Substance: PREDNISONE
     Dosage: UNK MG
  8. PROGRAF [Concomitant]
     Active Substance: TACROLIMUS
     Dosage: UNK MG
  9. METOPROLOL [Concomitant]
     Active Substance: METOPROLOL
     Dosage: UNK MG

REACTIONS (10)
  - Hypoaesthesia [Unknown]
  - Condition aggravated [Unknown]
  - Pain in extremity [Unknown]
  - Condition aggravated [Unknown]
  - Visual impairment [Unknown]
  - Condition aggravated [Unknown]
  - Extremity contracture [Unknown]
  - Oxygen saturation decreased [Unknown]
  - Weight increased [Unknown]
  - Product use in unapproved indication [Unknown]

NARRATIVE: CASE EVENT DATE: 20240301
